FAERS Safety Report 17677755 (Version 1)
Quarter: 2020Q2

REPORT INFORMATION
  Report Type: Report from Study
  Country: None (occurrence: US)
  Receive Date: 20200416
  Receipt Date: 20200416
  Transmission Date: 20200714
  Serious: No
  Sender: FDA-Public Use
  Company Number: US-ABBVIE-20K-163-3319438-00

PATIENT
  Age: 38 Year
  Sex: Female

DRUGS (1)
  1. ORILISSA [Suspect]
     Active Substance: ELAGOLIX SODIUM
     Indication: PRODUCT USED FOR UNKNOWN INDICATION
     Route: 048
     Dates: start: 202003

REACTIONS (4)
  - Hot flush [Not Recovered/Not Resolved]
  - Oedema [Recovered/Resolved]
  - Joint swelling [Unknown]
  - Liver function test increased [Unknown]

NARRATIVE: CASE EVENT DATE: 202003
